FAERS Safety Report 5787233-7 (Version None)
Quarter: 2008Q2

REPORT INFORMATION
  Report Type: 
  Country: None (occurrence: None)
  Receive Date: 20080625
  Receipt Date: 20080618
  Transmission Date: 20081010
  Serious: Yes (Death)
  Sender: FDA-Public Use
  Company Number: CA-JNJFOC-20080604930

PATIENT
  Age: 64 Year
  Sex: Male

DRUGS (1)
  1. DURAGESIC-100 [Suspect]
     Indication: BACK PAIN
     Route: 062

REACTIONS (4)
  - MEDICATION ERROR [None]
  - PNEUMONIA ASPIRATION [None]
  - RENAL FAILURE [None]
  - UNRESPONSIVE TO STIMULI [None]
